FAERS Safety Report 19310812 (Version 3)
Quarter: 2022Q1

REPORT INFORMATION
  Report Type: Spontaneous
  Country: US (occurrence: US)
  Receive Date: 20210526
  Receipt Date: 20220107
  Transmission Date: 20220423
  Serious: No
  Sender: FDA-Public Use
  Company Number: US-GW PHARMA-202105USGW02512

PATIENT

DRUGS (1)
  1. EPIDIOLEX [Suspect]
     Active Substance: CANNABIDIOL
     Indication: Lennox-Gastaut syndrome
     Dosage: 200 MILLIGRAM, BID, 2.92 MILLIGRAM/KILOGRAM/DAY
     Route: 048
     Dates: start: 20201204

REACTIONS (3)
  - Weight fluctuation [Unknown]
  - Weight increased [Unknown]
  - Weight decreased [Unknown]
